FAERS Safety Report 23573970 (Version 1)
Quarter: 2024Q1

REPORT INFORMATION
  Report Type: Report from Study
  Country: US (occurrence: US)
  Receive Date: 20240228
  Receipt Date: 20240228
  Transmission Date: 20240410
  Serious: Yes (Hospitalization)
  Sender: FDA-Public Use
  Company Number: US-TAKEDA-2021TUS076592

PATIENT
  Sex: Female

DRUGS (2)
  1. DEXLANSOPRAZOLE [Suspect]
     Active Substance: DEXLANSOPRAZOLE
     Indication: Product used for unknown indication
     Dosage: 60 MILLIGRAM, BID
     Route: 048
  2. AMITIZA [Suspect]
     Active Substance: LUBIPROSTONE
     Indication: Product used for unknown indication
     Dosage: 24 MILLIGRAM, BID
     Route: 048

REACTIONS (4)
  - Hospitalisation [Unknown]
  - Product use issue [Unknown]
  - Overdose [Unknown]
  - No adverse event [Unknown]
